FAERS Safety Report 6017072-3 (Version None)
Quarter: 2008Q4

REPORT INFORMATION
  Report Type: 
  Country: None (occurrence: None)
  Receive Date: 20081223
  Receipt Date: 20081219
  Transmission Date: 20090506
  Serious: Yes (Hospitalization)
  Sender: FDA-Public Use
  Company Number: US-ASTRAZENECA-2008UW28425

PATIENT
  Age: 22090 Day
  Sex: Male

DRUGS (2)
  1. NEXIUM [Suspect]
     Route: 048
     Dates: start: 20060714
  2. GABAPENTIN [Concomitant]

REACTIONS (3)
  - MYOCARDIAL INFARCTION [None]
  - PARAESTHESIA [None]
  - THINKING ABNORMAL [None]
